FAERS Safety Report 9287936 (Version 1)
Quarter: 2013Q2

REPORT INFORMATION
  Report Type: Spontaneous
  Country: US (occurrence: US)
  Receive Date: 20130514
  Receipt Date: 20130514
  Transmission Date: 20140414
  Serious: Yes (Other)
  Sender: FDA-Public Use
  Company Number: US-NOVOPROD-377281

PATIENT
  Age: 80 Year
  Sex: Male
  Weight: 83.9 kg

DRUGS (1)
  1. LEVEMIR [Suspect]
     Indication: TYPE 2 DIABETES MELLITUS
     Dosage: 19 UNITS, Q AM AND 15 UNITS Q PM
     Route: 058
     Dates: start: 2012

REACTIONS (1)
  - Pancreatitis [Not Recovered/Not Resolved]
